FAERS Safety Report 22616777 (Version 2)
Quarter: 2024Q1

REPORT INFORMATION
  Report Type: Spontaneous
  Country: FR (occurrence: FR)
  Receive Date: 20230619
  Receipt Date: 20240330
  Transmission Date: 20240410
  Serious: Yes (Other)
  Sender: FDA-Public Use
  Company Number: FR-JAZZ PHARMACEUTICALS-2023-FR-013016

PATIENT

DRUGS (3)
  1. VYXEOS [Suspect]
     Active Substance: CYTARABINE\DAUNORUBICIN
     Indication: Chronic myelomonocytic leukaemia
     Dosage: 44 MILLIGRAM/SQ.METER/DAY, AT D-14 AND D-12
  2. FLUDARABINE [Suspect]
     Active Substance: FLUDARABINE PHOSPHATE
     Indication: Chronic myelomonocytic leukaemia
     Dosage: 30 MILLIGRAM/SQ. METER/DAY, FROM D-6 TO D-2
  3. CYCLOPHOSPHAMIDE [Suspect]
     Active Substance: CYCLOPHOSPHAMIDE
     Indication: Chronic myelomonocytic leukaemia
     Dosage: 14.5 MILLIGRAM/SQ. METER/DAY, AT D-6 AND D-5

REACTIONS (4)
  - Febrile neutropenia [Unknown]
  - Enterocolitis [Unknown]
  - Stomatitis [Unknown]
  - Off label use [Unknown]
